FAERS Safety Report 21004611 (Version 1)
Quarter: 2022Q2

REPORT INFORMATION
  Report Type: Spontaneous
  Country: US (occurrence: US)
  Receive Date: 20220624
  Receipt Date: 20220624
  Transmission Date: 20220721
  Serious: Yes (Other)
  Sender: FDA-Public Use
  Company Number: US-MYLANLABS-2022M1047925

PATIENT
  Age: 79 Year
  Sex: Female

DRUGS (7)
  1. CARBOPLATIN [Suspect]
     Active Substance: CARBOPLATIN
     Indication: Lung squamous cell carcinoma stage IV
     Dosage: UNK UNK, CYCLE, FIRST-LINE CHEMOTHERAPY; RECEIVED 6 CYCLES???.
     Route: 065
  2. CARBOPLATIN [Suspect]
     Active Substance: CARBOPLATIN
     Indication: Neuroendocrine carcinoma
  3. CARBOPLATIN [Suspect]
     Active Substance: CARBOPLATIN
     Indication: Large cell lung cancer
  4. GEMCITABINE [Suspect]
     Active Substance: GEMCITABINE
     Indication: Lung squamous cell carcinoma stage IV
     Dosage: UNK, FIRST-LINE CHEMOTHERAPY; RECEIVED 6 CYCLES FOR??
     Route: 065
  5. ETOPOSIDE [Suspect]
     Active Substance: ETOPOSIDE
     Indication: Neuroendocrine carcinoma
     Dosage: UNK, CYCLE, FOURTH-LINE CHEMOTHERAPY WITH CARBOPLATIN?..
     Route: 065
  6. ETOPOSIDE [Suspect]
     Active Substance: ETOPOSIDE
     Indication: Large cell lung cancer
  7. ERLOTINIB [Suspect]
     Active Substance: ERLOTINIB
     Indication: Lung squamous cell carcinoma stage IV
     Dosage: UNK, SECOND-LINE CHEMOTHERAPY
     Route: 065

REACTIONS (1)
  - Therapy non-responder [Unknown]
